FAERS Safety Report 6344507-9 (Version None)
Quarter: 2009Q3

REPORT INFORMATION
  Report Type: 
  Country: None (occurrence: None)
  Receive Date: 20090903
  Receipt Date: 20090901
  Transmission Date: 20100115
  Serious: Yes (Other)
  Sender: FDA-Public Use
  Company Number: 430049M06USA

PATIENT
  Age: 54 Year
  Sex: Female
  Weight: 62 kg

DRUGS (20)
  1. NOVANTRONE [Suspect]
     Indication: MULTIPLE SCLEROSIS
     Dosage: 4 IN 1 YEARS
     Dates: start: 20050501, end: 20060501
  2. REBIF [Suspect]
     Indication: MULTIPLE SCLEROSIS
     Dosage: 44 MCG, 3 IN 1 WEEKS, 22 MCG, 3 IN 1 WEEKS, SUBCUTANEOUS
     Route: 058
     Dates: start: 20011203
  3. NEURONTIN [Concomitant]
  4. DIOVAN [Concomitant]
  5. LEVOTHROID [Concomitant]
  6. LIPITOR [Concomitant]
  7. LEXAPRO [Concomitant]
  8. ALEVE [Concomitant]
  9. KLONOPIN [Concomitant]
  10. ZOCOR [Concomitant]
  11. BONIVA [Concomitant]
  12. PROTONIX [Concomitant]
  13. ASPIRIN [Concomitant]
  14. VAGISM (ALL OTHER THERAPEUTIC PRODUCTS) [Concomitant]
  15. BETAMATHOSONE DIPROPIRONATE (BETAMETHASONE DIPROPIONATE) [Concomitant]
  16. LORTAB (VICODIN) [Concomitant]
  17. FLORINAL WITH CODEINE (FIORINAL-C 1/4/00141601) [Concomitant]
  18. SILVERX (ALL OTHER THERAPEUTIC PRODUCTS) [Concomitant]
  19. AMBIEN [Concomitant]
  20. LYRICA [Concomitant]

REACTIONS (15)
  - ABDOMINAL DISTENSION [None]
  - ATRIOVENTRICULAR BLOCK SECOND DEGREE [None]
  - CARDIAC FAILURE CONGESTIVE [None]
  - CHEST PAIN [None]
  - EJECTION FRACTION DECREASED [None]
  - FLUID RETENTION [None]
  - HYPOTENSION [None]
  - JOINT SWELLING [None]
  - MUSCLE SPASMS [None]
  - OEDEMA PERIPHERAL [None]
  - PERICARDIAL EFFUSION [None]
  - PERICARDITIS [None]
  - PULMONARY ARTERIAL WEDGE PRESSURE DECREASED [None]
  - SCAR [None]
  - WEIGHT INCREASED [None]
